FAERS Safety Report 16049402 (Version 1)
Quarter: 2019Q1

REPORT INFORMATION
  Report Type: Spontaneous
  Country: US (occurrence: US)
  Receive Date: 20190307
  Receipt Date: 20190307
  Transmission Date: 20190418
  Serious: No
  Sender: FDA-Public Use
  Company Number: US-PFIZER INC-2019090196

PATIENT
  Sex: Male

DRUGS (1)
  1. GEMCITABINE HYDROCHLORIDE. [Suspect]
     Active Substance: GEMCITABINE HYDROCHLORIDE
     Dosage: UNK
     Dates: start: 20190212

REACTIONS (8)
  - Asthenia [Unknown]
  - Blood glucose increased [Unknown]
  - Blood magnesium decreased [Unknown]
  - Rash [Unknown]
  - Platelet count decreased [Unknown]
  - Blood pressure increased [Unknown]
  - Blood potassium decreased [Unknown]
  - Peripheral swelling [Unknown]
